FAERS Safety Report 25979308 (Version 1)
Quarter: 2025Q4

REPORT INFORMATION
  Report Type: Spontaneous
  Country: IN (occurrence: IN)
  Receive Date: 20251030
  Receipt Date: 20251030
  Transmission Date: 20260117
  Serious: Yes (Other)
  Sender: RANBAXY
  Company Number: IN-SUN PHARMACEUTICAL INDUSTRIES LTD-2025R1-533830

PATIENT
  Age: 45 Year
  Sex: Female

DRUGS (3)
  1. CLOBETASOL [Suspect]
     Active Substance: CLOBETASOL
     Indication: Lichen planus
     Dosage: 0.05 PERCENT
     Route: 065
  2. METHOTREXATE [Suspect]
     Active Substance: METHOTREXATE
     Indication: Lichen planus
     Dosage: 15 MILLIGRAM, 1/WEEK
     Route: 048
  3. TACROLIMUS [Suspect]
     Active Substance: TACROLIMUS
     Indication: Lichen planus
     Dosage: 0.1 PERCENT
     Route: 065

REACTIONS (2)
  - Disease progression [Recovering/Resolving]
  - Therapeutic response decreased [Unknown]
